FAERS Safety Report 19620018 (Version 1)
Quarter: 2021Q3

REPORT INFORMATION
  Report Type: Spontaneous
  Country: US (occurrence: US)
  Receive Date: 20210728
  Receipt Date: 20210728
  Transmission Date: 20211014
  Serious: No
  Sender: FDA-Public Use
  Company Number: US-ROCHE-2742333

PATIENT
  Sex: Female

DRUGS (4)
  1. TUKYSA [Suspect]
     Active Substance: TUCATINIB
     Indication: PRODUCT USED FOR UNKNOWN INDICATION
     Dosage: 5 TABLETS
     Route: 065
     Dates: start: 20201021, end: 20210115
  2. TUKYSA [Suspect]
     Active Substance: TUCATINIB
     Route: 065
  3. XELODA [Suspect]
     Active Substance: CAPECITABINE
     Indication: PRODUCT USED FOR UNKNOWN INDICATION
     Route: 065
  4. TUKYSA [Suspect]
     Active Substance: TUCATINIB
     Route: 065

REACTIONS (3)
  - Dry skin [Unknown]
  - Fatigue [Unknown]
  - Gastric disorder [Unknown]
